FAERS Safety Report 13402067 (Version 1)
Quarter: 2017Q2

REPORT INFORMATION
  Report Type: Spontaneous
  Country: US (occurrence: US)
  Receive Date: 20170404
  Receipt Date: 20170404
  Transmission Date: 20170830
  Serious: Yes (Other)
  Sender: FDA-Public Use
  Company Number: US-TEVA-755635USA

PATIENT
  Age: 89 Year
  Sex: Female

DRUGS (2)
  1. ALENDRONIC ACID [Suspect]
     Active Substance: ALENDRONIC ACID
     Dosage: RECEIVING FOR MORE THAN 10 YEARS
     Route: 048
  2. RECLAST [Suspect]
     Active Substance: ZOLEDRONIC ACID
     Dosage: A SINGLE DOSE OF ZOLEDRONIC ACID
     Route: 042

REACTIONS (3)
  - Osteonecrosis of jaw [Unknown]
  - Jaw fracture [Unknown]
  - Infection [Unknown]
